FAERS Safety Report 17093562 (Version 1)
Quarter: 2019Q4

REPORT INFORMATION
  Report Type: Spontaneous
  Country: GB (occurrence: GB)
  Receive Date: 20191129
  Receipt Date: 20191129
  Transmission Date: 20200122
  Serious: Yes (Other)
  Sender: FDA-Public Use
  Company Number: GB-ROCHE-2487559

PATIENT
  Age: 7 Month
  Sex: Female

DRUGS (3)
  1. FOSCARNET [Concomitant]
     Active Substance: FOSCARNET
  2. CYMEVENE [GANCICLOVIR] [Suspect]
     Active Substance: GANCICLOVIR
     Indication: PRODUCT USED FOR UNKNOWN INDICATION
     Route: 065
  3. CIDOFOVIR. [Concomitant]
     Active Substance: CIDOFOVIR

REACTIONS (3)
  - Drug resistance [Unknown]
  - Off label use [Unknown]
  - Product use issue [Unknown]
